FAERS Safety Report 14034051 (Version 1)
Quarter: 2017Q4

REPORT INFORMATION
  Report Type: Spontaneous
  Country: NZ (occurrence: NZ)
  Receive Date: 20171003
  Receipt Date: 20171003
  Transmission Date: 20180321
  Serious: Yes (Other)
  Sender: FDA-Public Use
  Company Number: NZ-LANNETT COMPANY, INC.-NZ-2017LAN001069

PATIENT

DRUGS (5)
  1. RIFAMPIN. [Suspect]
     Active Substance: RIFAMPIN
     Dosage: UNK, 7-10 MONTHS
     Route: 065
  2. RIFAMPIN. [Suspect]
     Active Substance: RIFAMPIN
     Indication: INFECTIVE UVEITIS
     Dosage: UNK
     Route: 065
  3. ISONIAZID. [Suspect]
     Active Substance: ISONIAZID
     Indication: INFECTIVE UVEITIS
     Dosage: UNK
     Route: 065
  4. ISONIAZID. [Suspect]
     Active Substance: ISONIAZID
     Dosage: UNK, 7-10 MONTHS
     Route: 065
  5. PYRAZINAMIDE. [Suspect]
     Active Substance: PYRAZINAMIDE
     Indication: INFECTIVE UVEITIS
     Dosage: UNK
     Route: 065

REACTIONS (1)
  - Drug reaction with eosinophilia and systemic symptoms [Unknown]
